FAERS Safety Report 12802570 (Version 3)
Quarter: 2017Q2

REPORT INFORMATION
  Report Type: Spontaneous
  Country: US (occurrence: US)
  Receive Date: 20161003
  Receipt Date: 20170528
  Transmission Date: 20170830
  Serious: Yes (Disabling)
  Sender: FDA-Public Use
  Company Number: US-009507513-1608USA008848

PATIENT
  Age: 76 Year
  Sex: Male
  Weight: 65.76 kg

DRUGS (2)
  1. BELSOMRA [Suspect]
     Active Substance: SUVOREXANT
     Indication: INSOMNIA
     Dosage: 1 MG TABLET, EVERY NIGHT
     Dates: start: 20151215, end: 20160305
  2. BELSOMRA [Suspect]
     Active Substance: SUVOREXANT
     Indication: INSOMNIA
     Dosage: 20 MG, AT BEDTIME
     Dates: start: 20160306, end: 20160311

REACTIONS (1)
  - Amnesia [Not Recovered/Not Resolved]

NARRATIVE: CASE EVENT DATE: 20151225
